FAERS Safety Report 4692866-5 (Version None)
Quarter: 2005Q2

REPORT INFORMATION
  Report Type: 
  Country: None (occurrence: None)
  Receive Date: 20050617
  Receipt Date: 20050606
  Transmission Date: 20051028
  Serious: Yes (Other)
  Sender: FDA-Public Use
  Company Number: US-BRISTOL-MYERS SQUIBB COMPANY-12995015

PATIENT
  Age: 68 Year
  Sex: Female
  Weight: 55 kg

DRUGS (5)
  1. ESTRACE [Suspect]
     Indication: MENOPAUSE
     Dates: start: 20000101, end: 20010101
  2. PREMARIN [Suspect]
     Indication: MENOPAUSE
     Dates: start: 19880101, end: 20000101
  3. PROVERA [Suspect]
     Indication: MENOPAUSE
     Dates: start: 19880101, end: 20010101
  4. ACTIVELLA [Suspect]
     Indication: MENOPAUSE
     Dates: start: 20000101, end: 20040101
  5. XANAX [Concomitant]
     Indication: ANXIETY

REACTIONS (2)
  - BREAST CANCER [None]
  - DEPRESSION [None]
